FAERS Safety Report 7843037-2 (Version None)
Quarter: 2011Q4

REPORT INFORMATION
  Report Type: 
  Country: None (occurrence: None)
  Receive Date: 20111020
  Receipt Date: 20111012
  Transmission Date: 20120403
  Serious: Yes (Other)
  Sender: FDA-Public Use
  Company Number: 2011SP048401

PATIENT
  Age: 46 Year
  Sex: Female
  Weight: 69.4003 kg

DRUGS (4)
  1. REMERON [Suspect]
     Indication: PRODUCT USED FOR UNKNOWN INDICATION
     Dosage: 60 MG;QD;PO
     Route: 048
  2. SYNTHROID [Concomitant]
  3. SEROQUEL [Concomitant]
  4. ZOLOFT [Concomitant]

REACTIONS (3)
  - ABNORMAL BEHAVIOUR [None]
  - CONFUSIONAL STATE [None]
  - DISORIENTATION [None]
